FAERS Safety Report 7503933-2 (Version None)
Quarter: 2011Q2

REPORT INFORMATION
  Report Type: 
  Country: None (occurrence: None)
  Receive Date: 20110525
  Receipt Date: 20110519
  Transmission Date: 20111010
  Serious: Yes (Death)
  Sender: FDA-Public Use
  Company Number: JP-GENZYME-THYM-1002486

PATIENT
  Sex: Male
  Weight: 58 kg

DRUGS (3)
  1. THYMOGLOBULIN [Suspect]
     Indication: APLASTIC ANAEMIA
     Dosage: 3.5 MG/KG, QD
     Route: 042
     Dates: start: 20110509, end: 20110513
  2. FILGRASTIM [Concomitant]
     Indication: PRODUCT USED FOR UNKNOWN INDICATION
     Dosage: 300 MCG, UNK
     Route: 042
     Dates: start: 20110305, end: 20110513
  3. CYCLOSPORINE [Concomitant]
     Indication: PRODUCT USED FOR UNKNOWN INDICATION
     Dosage: 200 MG, QD
     Route: 048
     Dates: start: 20110509, end: 20110513

REACTIONS (2)
  - APLASTIC ANAEMIA [None]
  - RESPIRATORY FAILURE [None]
